FAERS Safety Report 4787981-1 (Version None)
Quarter: 2005Q3

REPORT INFORMATION
  Report Type: 
  Country: None (occurrence: None)
  Receive Date: 20050923
  Receipt Date: 20041123
  Transmission Date: 20060218
  Serious: No
  Sender: FDA-Public Use
  Company Number: 04H-163-0281780-00

PATIENT

DRUGS (1)
  1. MEPERIDINE HYDROCHLORIDE INJ [Suspect]

REACTIONS (2)
  - ACCIDENTAL OVERDOSE [None]
  - MEDICATION ERROR [None]
